FAERS Safety Report 6548267 (Version 3)
Quarter: 2020Q3

REPORT INFORMATION
  Report Type: Report from Study
  Country: US (occurrence: US)
  Receive Date: 20080208
  Receipt Date: 20080613
  Transmission Date: 20201104
  Serious: Yes (Other)
  Sender: FDA-Public Use
  Company Number: US-WYE-H02399608

PATIENT
  Age: 52 Year
  Sex: Female
  Weight: 49.9 kg

DRUGS (10)
  1. PEGINTRON [Suspect]
     Active Substance: PEGINTERFERON ALFA-2B
     Indication: HEPATITIS C
     Route: 058
     Dates: start: 20070413, end: 20080313
  2. GLYBURIDE. [Concomitant]
     Active Substance: GLYBURIDE
     Indication: DIABETES MELLITUS
     Route: 048
     Dates: start: 20070418
  3. ALPHAGAN P [Concomitant]
     Active Substance: BRIMONIDINE TARTRATE
     Indication: GLAUCOMA
     Dosage: 0.15% 4 TIMES PER DAY
     Route: 047
     Dates: start: 1998
  4. TYLENOL EXTRA STRENGTH [Concomitant]
     Active Substance: ACETAMINOPHEN
     Indication: INFLUENZA LIKE ILLNESS
     Dosage: 1000 MG EVERY 1 PRN
     Route: 048
     Dates: start: 20070414
  5. RIBAVIRIN. [Suspect]
     Active Substance: RIBAVIRIN
     Indication: HEPATITIS C
     Route: 048
     Dates: start: 20070413, end: 20080320
  6. PIROXICAM. [Concomitant]
     Active Substance: PIROXICAM
     Indication: NERVE COMPRESSION
     Dosage: 20 MG EVERY 1 PRN
     Route: 048
     Dates: start: 20070209
  7. NESBUVIR [Suspect]
     Active Substance: NESBUVIR
     Indication: HEPATITIS C
     Route: 048
     Dates: start: 20070413, end: 20070809
  8. TIMOLOL MALEATE. [Concomitant]
     Active Substance: TIMOLOL MALEATE
     Indication: GLAUCOMA
     Route: 047
     Dates: start: 1998
  9. LUMIGAN [Concomitant]
     Active Substance: BIMATOPROST
     Indication: GLAUCOMA
     Dosage: 0.03% EVERY 8 HOURS
     Route: 047
     Dates: start: 1998
  10. METFORMIN HYDROCHLORIDE. [Concomitant]
     Active Substance: METFORMIN HYDROCHLORIDE
     Indication: DIABETES MELLITUS
     Route: 048
     Dates: start: 20070416

REACTIONS (2)
  - Aspartate aminotransferase increased [Recovered/Resolved]
  - Alanine aminotransferase increased [Recovered/Resolved]

NARRATIVE: CASE EVENT DATE: 20071130
